FAERS Safety Report 23366161 (Version 1)
Quarter: 2024Q1

REPORT INFORMATION
  Report Type: Spontaneous
  Country: TN (occurrence: TN)
  Receive Date: 20240104
  Receipt Date: 20240104
  Transmission Date: 20240409
  Serious: Yes (Hospitalization)
  Sender: FDA-Public Use
  Company Number: TN-BEXIMCO-2023BEX00085

PATIENT
  Age: 18 Year
  Sex: Female

DRUGS (1)
  1. FLECAINIDE ACETATE [Suspect]
     Active Substance: FLECAINIDE ACETATE
     Indication: Suicide attempt
     Dosage: UNK

REACTIONS (2)
  - Suicide attempt [Recovering/Resolving]
  - Overdose [Recovering/Resolving]
